FAERS Safety Report 8934839 (Version 1)
Quarter: 2012Q4

REPORT INFORMATION
  Report Type: 
  Country: GB (occurrence: GB)
  Receive Date: 20121129
  Receipt Date: 20121129
  Transmission Date: 20130627
  Serious: Yes (Life-Threatening)
  Sender: FDA-Public Use
  Company Number: GB-TEVA-372183ISR

PATIENT
  Age: 33 Year
  Sex: Female
  Weight: 52 kg

DRUGS (1)
  1. LACTULOSE [Suspect]
     Indication: CONSTIPATION
     Dosage: 60-80 ml daily
     Route: 048

REACTIONS (3)
  - Dehydration [Not Recovered/Not Resolved]
  - Renal failure [Not Recovered/Not Resolved]
  - Overdose [Not Recovered/Not Resolved]
